FAERS Safety Report 19412684 (Version 1)
Quarter: 2021Q2

REPORT INFORMATION
  Report Type: Spontaneous
  Country: IT (occurrence: IT)
  Receive Date: 20210614
  Receipt Date: 20210614
  Transmission Date: 20210717
  Serious: Yes (Other)
  Sender: FDA-Public Use
  Company Number: IT-MYLANLABS-2021M1033421

PATIENT
  Age: 37 Year
  Sex: Male

DRUGS (4)
  1. OLANZAPINE. [Suspect]
     Active Substance: OLANZAPINE
     Indication: INTELLECTUAL DISABILITY
     Dosage: UNK
     Route: 048
  2. OLANZAPINE. [Suspect]
     Active Substance: OLANZAPINE
     Indication: SCHIZOPHRENIA
  3. PALIPERIDONE. [Suspect]
     Active Substance: PALIPERIDONE
     Indication: INTELLECTUAL DISABILITY
     Dosage: UNK
     Route: 048
  4. PALIPERIDONE. [Suspect]
     Active Substance: PALIPERIDONE
     Indication: SCHIZOPHRENIA

REACTIONS (1)
  - Drug ineffective [Unknown]
